FAERS Safety Report 18799979 (Version 1)
Quarter: 2021Q1

REPORT INFORMATION
  Report Type: Spontaneous
  Country: BE (occurrence: BE)
  Receive Date: 20210128
  Receipt Date: 20210128
  Transmission Date: 20210419
  Serious: Yes (Other)
  Sender: FDA-Public Use
  Company Number: BE-GRANULES-BE-2021GRALIT00048

PATIENT
  Age: 12 Year
  Sex: Male

DRUGS (6)
  1. METHYLPHENIDATE HYDROCHLORIDE. [Suspect]
     Active Substance: METHYLPHENIDATE HYDROCHLORIDE
     Route: 065
  2. METHYLPHENIDATE HYDROCHLORIDE. [Suspect]
     Active Substance: METHYLPHENIDATE HYDROCHLORIDE
     Route: 065
  3. METHYLPHENIDATE HYDROCHLORIDE. [Suspect]
     Active Substance: METHYLPHENIDATE HYDROCHLORIDE
     Indication: ATTENTION DEFICIT HYPERACTIVITY DISORDER
     Route: 065
  4. METHYLPHENIDATE HYDROCHLORIDE. [Suspect]
     Active Substance: METHYLPHENIDATE HYDROCHLORIDE
     Route: 065
  5. AMOXICILLIN. [Interacting]
     Active Substance: AMOXICILLIN
     Indication: BRONCHITIS
     Route: 065
  6. CLAVULANIC ACID [Interacting]
     Active Substance: CLAVULANIC ACID
     Indication: BRONCHITIS
     Route: 065

REACTIONS (1)
  - Alice in wonderland syndrome [Recovered/Resolved]
